FAERS Safety Report 18729226 (Version 1)
Quarter: 2021Q1

REPORT INFORMATION
  Report Type: Spontaneous
  Country: US (occurrence: US)
  Receive Date: 20210111
  Receipt Date: 20210111
  Transmission Date: 20210419
  Serious: Yes (Hospitalization)
  Sender: FDA-Public Use
  Company Number: None

PATIENT
  Age: 76 Year
  Sex: Male

DRUGS (13)
  1. ZORTRESS [Suspect]
     Active Substance: EVEROLIMUS
     Indication: RENAL TRANSPLANT
     Route: 048
     Dates: start: 20180128
  2. PROGRAF [Suspect]
     Active Substance: TACROLIMUS
  3. ATENOLOL. [Concomitant]
     Active Substance: ATENOLOL
  4. LOSARTAN POT [Suspect]
     Active Substance: LOSARTAN POTASSIUM
  5. TAMSULOSIN [Suspect]
     Active Substance: TAMSULOSIN
  6. GENGRAF [Suspect]
     Active Substance: CYCLOSPORINE
     Indication: RENAL TRANSPLANT
     Dosage: ?          OTHER DOSE:1 CAP;?
     Route: 048
     Dates: start: 20180128
  7. ASPIRIN. [Suspect]
     Active Substance: ASPIRIN
  8. CALCIUM DISODIUM VERSENATE [Concomitant]
     Active Substance: EDETATE CALCIUM DISODIUM
  9. CARAC CRE [Concomitant]
  10. ELIQUIS [Suspect]
     Active Substance: APIXABAN
  11. CENTRUM SILVER [Concomitant]
     Active Substance: MINERALS\VITAMINS
  12. PREDNINOSE [Concomitant]
  13. ATORVASTATIN [Concomitant]
     Active Substance: ATORVASTATIN

REACTIONS (1)
  - COVID-19 [None]

NARRATIVE: CASE EVENT DATE: 20201219
